FAERS Safety Report 7625661-5 (Version None)
Quarter: 2011Q3

REPORT INFORMATION
  Report Type: 
  Country: None (occurrence: None)
  Receive Date: 20110713
  Receipt Date: 20110628
  Transmission Date: 20111222
  Serious: Yes (Death)
  Sender: FDA-Public Use
  Company Number: AUR-APL-2011-03809

PATIENT
  Age: 58 Year
  Sex: Female

DRUGS (5)
  1. FLUVOXAMINE MALEATE [Suspect]
     Indication: PRODUCT USED FOR UNKNOWN INDICATION
     Dosage: (134 DOSAGE FORMS),ORAL
     Route: 048
     Dates: end: 20070101
  2. RISPERIDONE [Suspect]
     Indication: PRODUCT USED FOR UNKNOWN INDICATION
     Dosage: (9 DOSAGE FORMS),ORAL
     Route: 048
     Dates: end: 20070101
  3. ZOLPIDEM [Suspect]
     Indication: PRODUCT USED FOR UNKNOWN INDICATION
     Dosage: (90 DOSAGE FORMS),ORAL
     Route: 048
     Dates: end: 20070101
  4. ACETAMINOPHEN/DIPHENHYDRAMINE (DOZOL /00435101/) [Suspect]
     Indication: PRODUCT USED FOR UNKNOWN INDICATION
     Dosage: (385 DOSAGE FORMS),ORAL
     Route: 048
     Dates: end: 20070101
  5. ALPRAZOLAM [Suspect]
     Indication: PRODUCT USED FOR UNKNOWN INDICATION
     Dosage: (480 DOSAGE FORMS),ORAL
     Route: 048
     Dates: end: 20070101

REACTIONS (12)
  - BLOOD PRESSURE DECREASED [None]
  - HEART RATE DECREASED [None]
  - SINUS BRADYCARDIA [None]
  - METABOLIC ACIDOSIS [None]
  - MYDRIASIS [None]
  - COMPLETED SUICIDE [None]
  - LOSS OF CONSCIOUSNESS [None]
  - BUNDLE BRANCH BLOCK RIGHT [None]
  - BUNDLE BRANCH BLOCK LEFT [None]
  - UNRESPONSIVE TO STIMULI [None]
  - MULTIPLE DRUG OVERDOSE INTENTIONAL [None]
  - COMA [None]
